FAERS Safety Report 11862027 (Version 1)
Quarter: 2015Q4

REPORT INFORMATION
  Report Type: Spontaneous
  Country: US (occurrence: None)
  Receive Date: 20151222
  Receipt Date: 20151222
  Transmission Date: 20160305
  Serious: No
  Sender: FDA-Public Use
  Company Number: None

PATIENT
  Age: 53 Year
  Sex: Female

DRUGS (1)
  1. XELJANZ [Suspect]
     Active Substance: TOFACITINIB CITRATE
     Indication: POLYARTHRITIS
     Route: 048

REACTIONS (4)
  - Therapeutic product ineffective [None]
  - Weight increased [None]
  - Contusion [None]
  - Blood pressure increased [None]

NARRATIVE: CASE EVENT DATE: 20151221
